FAERS Safety Report 10596344 (Version 2)
Quarter: 2014Q4

REPORT INFORMATION
  Report Type: Spontaneous
  Country: CA (occurrence: CA)
  Receive Date: 20141120
  Receipt Date: 20141230
  Transmission Date: 20150529
  Serious: Yes (Other)
  Sender: FDA-Public Use
  Company Number: CA-SA-2014SA156970

PATIENT
  Age: 45 Year
  Sex: Female
  Weight: 44 kg

DRUGS (5)
  1. ELOXATIN [Suspect]
     Active Substance: OXALIPLATIN
     Indication: COLON CANCER
     Dosage: FREQUNECY:Q2 WEEKS
     Route: 065
     Dates: start: 20140117
  2. DEXAMETHASONE. [Concomitant]
     Active Substance: DEXAMETHASONE
     Dosage: 30 MIN. PRE-CHEMO
  3. ONDANSETRON [Concomitant]
     Active Substance: ONDANSETRON
     Dosage: 30 MIN. PRE-CHEMO
  4. CAPECITABINE. [Concomitant]
     Active Substance: CAPECITABINE
     Dosage: 14 DAYS STARTING DAY 1 OF CHEMO
  5. PYRIDOXINE [Concomitant]
     Active Substance: PYRIDOXINE

REACTIONS (5)
  - Hypoaesthesia oral [Recovered/Resolved]
  - Muscle spasms [Recovered/Resolved]
  - Speech disorder [Recovered/Resolved]
  - Throat tightness [Recovered/Resolved]
  - Dyspnoea [Recovered/Resolved]

NARRATIVE: CASE EVENT DATE: 20140304
